FAERS Safety Report 7187305-9 (Version None)
Quarter: 2010Q4

REPORT INFORMATION
  Report Type: 
  Country: None (occurrence: None)
  Receive Date: 20101222
  Receipt Date: 20101210
  Transmission Date: 20110411
  Serious: Yes (Hospitalization, Other)
  Sender: FDA-Public Use
  Company Number: FR-ELI_LILLY_AND_COMPANY-FR201012002476

PATIENT
  Age: 53 Year
  Sex: Female

DRUGS (7)
  1. ZYPREXA [Suspect]
     Indication: PSYCHOTIC DISORDER
     Dosage: 10 MG, UNK
     Route: 048
     Dates: start: 20091001, end: 20100901
  2. SOLU-MEDROL [Concomitant]
     Dosage: 60 MG, DAILY (1/D)
     Route: 030
     Dates: start: 20100831, end: 20100901
  3. XELODA [Concomitant]
     Dates: end: 20100901
  4. LEVOTHYROX [Concomitant]
  5. VASTAREL [Concomitant]
  6. LYRICA [Concomitant]
  7. ALDACTONE [Concomitant]

REACTIONS (8)
  - DRUG DOSE OMISSION [None]
  - EPILEPSY [None]
  - GENERAL PHYSICAL HEALTH DETERIORATION [None]
  - HYPERGLYCAEMIA [None]
  - HYPOPHAGIA [None]
  - KETOACIDOSIS [None]
  - NEUROLOGICAL DECOMPENSATION [None]
  - SEPSIS [None]
